FAERS Safety Report 8185867-6 (Version None)
Quarter: 2012Q1

REPORT INFORMATION
  Report Type: 
  Country: None (occurrence: None)
  Receive Date: 20120305
  Receipt Date: 20120224
  Transmission Date: 20120608
  Serious: Yes (Hospitalization, Other)
  Sender: FDA-Public Use
  Company Number: US-ASTRAZENECA-2012SE13177

PATIENT
  Age: 61 Year
  Sex: Male

DRUGS (1)
  1. SEROQUEL [Suspect]
     Route: 048

REACTIONS (5)
  - CONFUSIONAL STATE [None]
  - MEMORY IMPAIRMENT [None]
  - WRONG DRUG ADMINISTERED [None]
  - POISONING DELIBERATE [None]
  - WRONG TECHNIQUE IN DRUG USAGE PROCESS [None]
